FAERS Safety Report 11220218 (Version 2)
Quarter: 2015Q3

REPORT INFORMATION
  Report Type: Report from Study
  Country: US (occurrence: US)
  Receive Date: 20150625
  Receipt Date: 20150928
  Transmission Date: 20151125
  Serious: Yes (Other)
  Sender: FDA-Public Use
  Company Number: US-EXELIXIS-CABO-15005446

PATIENT
  Age: 79 Year
  Sex: Male

DRUGS (6)
  1. FLUCONAZOLE. [Concomitant]
     Active Substance: FLUCONAZOLE
  2. DEXAMETHASONE. [Concomitant]
     Active Substance: DEXAMETHASONE
  3. COMETRIQ [Suspect]
     Active Substance: CABOZANTINIB S-MALATE
     Dosage: 80 MG, QD
     Route: 048
     Dates: start: 20150711, end: 201507
  4. COMETRIQ [Suspect]
     Active Substance: CABOZANTINIB S-MALATE
     Indication: SALIVARY GLAND CANCER STAGE 0
     Dosage: 100 MG, QD
     Route: 048
     Dates: start: 20150430, end: 201506
  5. SULCONAZOLE [Concomitant]
     Active Substance: SULCONAZOLE
  6. COMETRIQ [Suspect]
     Active Substance: CABOZANTINIB S-MALATE
     Dosage: 80 MG, QOD
     Route: 048
     Dates: start: 201507, end: 20150812

REACTIONS (6)
  - Off label use [Unknown]
  - Drug intolerance [Unknown]
  - Dehydration [Recovering/Resolving]
  - Oral infection [Not Recovered/Not Resolved]
  - Dysphagia [Unknown]
  - Dysphagia [Not Recovered/Not Resolved]

NARRATIVE: CASE EVENT DATE: 201505
